FAERS Safety Report 16652391 (Version 4)
Quarter: 2019Q3

REPORT INFORMATION
  Report Type: Spontaneous
  Country: BR (occurrence: BR)
  Receive Date: 20190731
  Receipt Date: 20190827
  Transmission Date: 20191004
  Serious: Yes (Hospitalization, Other)
  Sender: FDA-Public Use
  Company Number: PHHY2019BR174420

PATIENT
  Age: 70 Year
  Sex: Female

DRUGS (2)
  1. BETOPTIC S [Suspect]
     Active Substance: BETAXOLOL HYDROCHLORIDE
     Indication: GLAUCOMA
     Dosage: 1 GTT, Q12H
     Route: 047
     Dates: start: 2006
  2. BETOPTIC [Suspect]
     Active Substance: BETAXOLOL HYDROCHLORIDE
     Indication: GLAUCOMA
     Dosage: 1 GTT, QD
     Route: 047
     Dates: start: 201907, end: 201907

REACTIONS (9)
  - Ovarian cancer [Recovering/Resolving]
  - Spinal pain [Recovering/Resolving]
  - Eye irritation [Recovered/Resolved]
  - Bone pain [Recovering/Resolving]
  - Abdominal infection [Recovered/Resolved]
  - Product dispensing error [Unknown]
  - Cataract [Not Recovered/Not Resolved]
  - Vision blurred [Not Recovered/Not Resolved]
  - Incorrect dose administered [Unknown]

NARRATIVE: CASE EVENT DATE: 2015
